FAERS Safety Report 14164681 (Version 1)
Quarter: 2017Q4

REPORT INFORMATION
  Report Type: Spontaneous
  Country: US (occurrence: US)
  Receive Date: 20171107
  Receipt Date: 20171107
  Transmission Date: 20180321
  Serious: No
  Sender: FDA-Public Use
  Company Number: US-PFIZER INC-2017477581

PATIENT
  Age: 63 Year
  Sex: Female
  Weight: 73.8 kg

DRUGS (6)
  1. PERCOCET [Concomitant]
     Active Substance: ACETAMINOPHEN\OXYCODONE HYDROCHLORIDE
     Indication: PAIN
     Dosage: [OXYCODONE HYDROCHLORIDE 10MG]/[PARACETAMOL 325MG], PO Q4HOURS PRN
     Route: 048
  2. PROTONIX [Concomitant]
     Active Substance: PANTOPRAZOLE SODIUM
     Indication: ULCER
     Dosage: 40 MG, DAILY
  3. ERAXIS [Suspect]
     Active Substance: ANIDULAFUNGIN
     Indication: ABDOMINAL ABSCESS
     Dosage: 100 ML, 1X/DAY
     Route: 042
     Dates: start: 20171029
  4. UNASYN [Concomitant]
     Active Substance: AMPICILLIN SODIUM\SULBACTAM SODIUM
     Indication: INFECTION
     Dosage: 3 G, 4X/DAY
  5. LOVENOX [Concomitant]
     Active Substance: ENOXAPARIN SODIUM
     Indication: THROMBOSIS PROPHYLAXIS
     Dosage: UNK
  6. WELLBUTRIN XL [Concomitant]
     Active Substance: BUPROPION HYDROCHLORIDE
     Indication: DEPRESSION
     Dosage: 150 MG, DAILY

REACTIONS (3)
  - Infusion site inflammation [Unknown]
  - Infusion site extravasation [Unknown]
  - Infusion site erythema [Unknown]

NARRATIVE: CASE EVENT DATE: 20171102
